FAERS Safety Report 9845515 (Version 1)
Quarter: 2014Q1

REPORT INFORMATION
  Report Type: Spontaneous
  Country: US (occurrence: None)
  Receive Date: 20140123
  Receipt Date: 20140123
  Transmission Date: 20141002
  Serious: No
  Sender: FDA-Public Use
  Company Number: None

PATIENT
  Sex: Female
  Weight: 83.46 kg

DRUGS (1)
  1. ZOLPIDEM TARTRATE [Suspect]
     Indication: INSOMNIA
     Dosage: 10 MG  30 TABS  BEDTIME  MOUTH
     Route: 048
     Dates: start: 20131216, end: 20130122

REACTIONS (2)
  - Insomnia [None]
  - Product substitution issue [None]
